FAERS Safety Report 11368168 (Version 1)
Quarter: 2015Q3

REPORT INFORMATION
  Report Type: Spontaneous
  Country: US (occurrence: None)
  Receive Date: 20150811
  Receipt Date: 20150811
  Transmission Date: 20151125
  Serious: Yes (Death)
  Sender: FDA-Public Use
  Company Number: None

PATIENT
  Age: 48 Year
  Sex: Female
  Weight: 93.2 kg

DRUGS (2)
  1. CEFTRIAXONE. [Suspect]
     Active Substance: CEFTRIAXONE
     Indication: SINUSITIS
     Route: 030
     Dates: start: 20150728
  2. LIDOCAINE. [Suspect]
     Active Substance: LIDOCAINE
     Indication: SINUSITIS
     Route: 030
     Dates: start: 20150728

REACTIONS (3)
  - Anaphylactic reaction [None]
  - Hypersensitivity [None]
  - Cardio-respiratory arrest [None]

NARRATIVE: CASE EVENT DATE: 20150728
